FAERS Safety Report 7412406-7 (Version None)
Quarter: 2011Q2

REPORT INFORMATION
  Report Type: 
  Country: None (occurrence: None)
  Receive Date: 20110413
  Receipt Date: 20110331
  Transmission Date: 20111010
  Serious: Yes (Other)
  Sender: FDA-Public Use
  Company Number: PHHY2011BR27904

PATIENT
  Sex: Female

DRUGS (8)
  1. DIOVAN [Suspect]
     Dosage: 320 MG, UNK
  2. METHYLDOPA [Concomitant]
  3. LOSARTAN [Concomitant]
     Dosage: UNK
  4. METFORMIN [Suspect]
     Dosage: 850 MG, UNK
  5. NATRILIX [Concomitant]
     Dosage: UNK
  6. COMBIVENT [Concomitant]
     Dosage: 20/120MCG 10ML
  7. FORASEQ [Suspect]
     Dosage: 12/400 MG
  8. BUDECORT AQUA [Concomitant]
     Dosage: UNK

REACTIONS (3)
  - DIABETES MELLITUS [None]
  - VISUAL ACUITY REDUCED [None]
  - HYPERTENSION [None]
